FAERS Safety Report 5858597-0 (Version None)
Quarter: 2008Q3

REPORT INFORMATION
  Report Type: 
  Country: None (occurrence: None)
  Receive Date: 20080826
  Receipt Date: 20080814
  Transmission Date: 20090109
  Serious: Yes (Hospitalization, Other)
  Sender: FDA-Public Use
  Company Number: US-ELI_LILLY_AND_COMPANY-US200807001396

PATIENT
  Age: 42 Year
  Sex: Female
  Weight: 84.807 kg

DRUGS (3)
  1. CYMBALTA [Suspect]
     Indication: DEPRESSION
     Dosage: 30 MG, UNK
     Dates: start: 20080521, end: 20080602
  2. ULTRAM [Concomitant]
     Indication: PAIN
     Dosage: 100 MG, EVERY 6 HRS
     Dates: start: 20070101
  3. GABAPENTIN [Concomitant]
     Indication: PAIN
     Dosage: 800 MG, UNK
     Dates: start: 20070101

REACTIONS (6)
  - AMNESIA [None]
  - FALL [None]
  - LOSS OF CONSCIOUSNESS [None]
  - NAUSEA [None]
  - SWELLING [None]
  - VOMITING [None]
